FAERS Safety Report 6888414-1 (Version None)
Quarter: 2010Q3

REPORT INFORMATION
  Report Type: 
  Country: None (occurrence: None)
  Receive Date: 20100730
  Receipt Date: 20100719
  Transmission Date: 20110219
  Serious: Yes (Hospitalization, Other)
  Sender: FDA-Public Use
  Company Number: US-ELI_LILLY_AND_COMPANY-US201006003992

PATIENT
  Sex: Female

DRUGS (3)
  1. FORTEO [Suspect]
     Indication: OSTEOPOROSIS
     Dosage: 20 UG, DAILY (1/D)
     Route: 058
     Dates: start: 20100506
  2. ESTRACE [Concomitant]
     Dosage: UNK, 2/W
     Route: 067
  3. AMBIEN [Concomitant]
     Dosage: 10 MG, AS NEEDED
     Route: 048

REACTIONS (5)
  - INJECTION SITE HAEMATOMA [None]
  - INJURY [None]
  - MALAISE [None]
  - NAUSEA [None]
  - PELVIC FRACTURE [None]
